FAERS Safety Report 7394448-3 (Version None)
Quarter: 2011Q2

REPORT INFORMATION
  Report Type: 
  Country: None (occurrence: None)
  Receive Date: 20110405
  Receipt Date: 20110330
  Transmission Date: 20111010
  Serious: No
  Sender: FDA-Public Use
  Company Number: US-PFIZER INC-2011071272

PATIENT
  Sex: Male
  Weight: 19.05 kg

DRUGS (1)
  1. AZITHROMYCIN [Suspect]
     Indication: STREPTOCOCCAL INFECTION
     Dosage: UNK
     Dates: start: 20110315, end: 20110319

REACTIONS (2)
  - AGGRESSION [None]
  - ABNORMAL BEHAVIOUR [None]
